FAERS Safety Report 5802551-1 (Version None)
Quarter: 2008Q2

REPORT INFORMATION
  Report Type: 
  Country: None (occurrence: None)
  Receive Date: 20080630
  Receipt Date: 20070405
  Transmission Date: 20081010
  Serious: Yes (Hospitalization)
  Sender: FDA-Public Use
  Company Number: ENC200700048

PATIENT
  Age: 83 Year
  Sex: Female
  Weight: 90.5 kg

DRUGS (20)
  1. ARGATROBAN [Suspect]
     Dosage: 2 MCG/KG/MIN, 1.5 MG / HR, INTRAVENOUS
     Route: 042
     Dates: start: 20070321, end: 20070301
  2. ARGATROBAN [Suspect]
     Dosage: 2 MCG/KG/MIN, 1.5 MG / HR, INTRAVENOUS
     Route: 042
     Dates: start: 20070301
  3. COUMADIN [Suspect]
     Dosage: SEE IMAGE
     Route: 048
     Dates: end: 20070320
  4. COUMADIN [Suspect]
     Dosage: SEE IMAGE
     Route: 048
     Dates: end: 20070320
  5. COUMADIN [Suspect]
     Dosage: SEE IMAGE
     Route: 048
     Dates: start: 20070325, end: 20070327
  6. COUMADIN [Suspect]
     Dosage: SEE IMAGE
     Route: 048
     Dates: start: 20070328, end: 20070330
  7. COUMADIN [Suspect]
     Dosage: SEE IMAGE
     Route: 048
     Dates: start: 20070331, end: 20070331
  8. COUMADIN [Suspect]
     Dosage: SEE IMAGE
     Route: 048
     Dates: start: 20070401
  9. LISINOPRIL [Concomitant]
  10. POTASSIUM (POTASSIUM) [Concomitant]
  11. GLYBURIDE [Concomitant]
  12. ZOLOFT [Concomitant]
  13. GABAPENTIN [Concomitant]
  14. LASIX [Concomitant]
  15. LIPITOR [Concomitant]
  16. PROTONIX /01263201/(PANTOPRAZOLE) [Concomitant]
  17. SYNTHROID [Concomitant]
  18. MORPHINE [Concomitant]
  19. VICODIN [Concomitant]
  20. XANAX [Concomitant]

REACTIONS (1)
  - INTERNATIONAL NORMALISED RATIO DECREASED [None]
